FAERS Safety Report 17039142 (Version 4)
Quarter: 2020Q1

REPORT INFORMATION
  Report Type: Spontaneous
  Country: US (occurrence: US)
  Receive Date: 20191115
  Receipt Date: 20200306
  Transmission Date: 20200409
  Serious: Yes (Other)
  Sender: FDA-Public Use
  Company Number: US-SA-2019SA313613

PATIENT
  Age: 12 Year
  Sex: Female

DRUGS (2)
  1. DUPIXENT [Suspect]
     Active Substance: DUPILUMAB
     Dosage: 200 MG, QOW
     Route: 058
     Dates: start: 2019
  2. DUPIXENT [Suspect]
     Active Substance: DUPILUMAB
     Indication: PRODUCT USED FOR UNKNOWN INDICATION
     Dosage: 400 MG, 1X
     Route: 058
     Dates: start: 201909, end: 201909

REACTIONS (7)
  - Wrong technique in product usage process [Unknown]
  - Staphylococcal infection [Unknown]
  - Dry skin [Unknown]
  - Injection site pain [Unknown]
  - Erythema [Unknown]
  - Condition aggravated [Unknown]
  - Oral herpes [Unknown]
